FAERS Safety Report 12604629 (Version 1)
Quarter: 2016Q3

REPORT INFORMATION
  Report Type: Report from Study
  Country: HN (occurrence: HN)
  Receive Date: 20160728
  Receipt Date: 20160728
  Transmission Date: 20161109
  Serious: Yes (Other)
  Sender: FDA-Public Use
  Company Number: PHHY2016HN101480

PATIENT
  Age: 87 Year
  Sex: Female

DRUGS (1)
  1. DIOVAN [Suspect]
     Active Substance: VALSARTAN
     Indication: PRODUCT USED FOR UNKNOWN INDICATION
     Dosage: 320 MG, UNK
     Route: 065

REACTIONS (5)
  - Tongue discolouration [Unknown]
  - Memory impairment [Unknown]
  - Oral discomfort [Unknown]
  - Cerebrovascular accident [Unknown]
  - Oral mucosal discolouration [Unknown]
